FAERS Safety Report 21537070 (Version 1)
Quarter: 2022Q4

REPORT INFORMATION
  Report Type: Spontaneous
  Country: FR (occurrence: FR)
  Receive Date: 20221101
  Receipt Date: 20221101
  Transmission Date: 20230112
  Serious: Yes (Other)
  Sender: FDA-Public Use
  Company Number: FR-INSUD PHARMA-2210FR04420

PATIENT

DRUGS (4)
  1. NUVESSA [Suspect]
     Active Substance: METRONIDAZOLE
     Indication: Gastroenteritis clostridial
     Dosage: UNK
     Route: 065
  2. CEFOTAXIME [Suspect]
     Active Substance: CEFOTAXIME SODIUM
     Indication: Gastroenteritis clostridial
     Dosage: UNK
     Route: 065
  3. VANCOMYCIN [Suspect]
     Active Substance: VANCOMYCIN
     Indication: Gastroenteritis clostridial
     Dosage: UNK
     Route: 065
  4. AMIKACIN [Suspect]
     Active Substance: AMIKACIN
     Indication: Gastroenteritis clostridial
     Dosage: UNK
     Route: 065

REACTIONS (6)
  - Necrotising enterocolitis neonatal [Recovered/Resolved]
  - Condition aggravated [Recovered/Resolved]
  - Gastrointestinal disorder [Recovered/Resolved]
  - Systemic inflammatory response syndrome [Recovered/Resolved]
  - Intestinal ischaemia [Recovered/Resolved]
  - Dysbiosis [Recovered/Resolved]
